FAERS Safety Report 21444432 (Version 4)
Quarter: 2023Q1

REPORT INFORMATION
  Report Type: Spontaneous
  Country: CA (occurrence: CA)
  Receive Date: 20221012
  Receipt Date: 20230102
  Transmission Date: 20230418
  Serious: Yes (Other)
  Sender: FDA-Public Use
  Company Number: CA-CELLTRION INC.-2022CA015229

PATIENT

DRUGS (7)
  1. INFLECTRA [Suspect]
     Active Substance: INFLIXIMAB-DYYB
     Indication: Crohn^s disease
     Dosage: 5 MG/KG, AT WEEK 0, 2, 6 THEN EVERY (Q) 8 WEEKS
     Route: 042
     Dates: start: 20220914
  2. INFLECTRA [Suspect]
     Active Substance: INFLIXIMAB-DYYB
     Dosage: 5 MG/KG, AT WEEK 0, 2, 6 THEN Q 8 WEEKS
     Route: 042
     Dates: start: 20220927
  3. INFLECTRA [Suspect]
     Active Substance: INFLIXIMAB-DYYB
     Dosage: 5 MG/KG, AT WEEK 0, 2, 6 THEN Q 8 WEEKS
     Route: 042
     Dates: start: 20221025
  4. INFLECTRA [Suspect]
     Active Substance: INFLIXIMAB-DYYB
     Dosage: 5 MG/KG, AT WEEK 0, 2, 6 THEN Q 8 WEEKS
     Route: 042
     Dates: start: 20221223
  5. FOLIC ACID [Concomitant]
     Active Substance: FOLIC ACID
     Dosage: 1 DF, DOSAGE UNKNOWN
     Route: 065
     Dates: start: 20220905
  6. METHOTREXATE [Concomitant]
     Active Substance: METHOTREXATE
     Dosage: UNK
  7. METHOTREXATE [Concomitant]
     Active Substance: METHOTREXATE
     Dosage: 1 DF, DOSAGE UNKNOWN
     Route: 065
     Dates: start: 20220905

REACTIONS (7)
  - Neurogenic shock [Unknown]
  - Accident at work [Recovering/Resolving]
  - Wound [Recovering/Resolving]
  - Hypotension [Unknown]
  - Heart rate decreased [Unknown]
  - Off label use [Unknown]
  - Intentional product use issue [Unknown]

NARRATIVE: CASE EVENT DATE: 20220927
